FAERS Safety Report 7868773-3 (Version None)
Quarter: 2011Q4

REPORT INFORMATION
  Report Type: 
  Country: None (occurrence: None)
  Receive Date: 20111026
  Receipt Date: 20111026
  Transmission Date: 20120403
  Serious: Yes (Hospitalization)
  Sender: FDA-Public Use
  Company Number: None

PATIENT
  Sex: Male
  Weight: 77.2 kg

DRUGS (2)
  1. GEMCITABINE HYDROCHLORIDE [Suspect]
     Dosage: 5200 MG
  2. TARCEVA [Suspect]
     Dosage: 1500 MG

REACTIONS (7)
  - FATIGUE [None]
  - GOUT [None]
  - PYREXIA [None]
  - PANCREATITIS [None]
  - HYPOPHOSPHATAEMIA [None]
  - RASH [None]
  - CONDITION AGGRAVATED [None]
